FAERS Safety Report 18329342 (Version 4)
Quarter: 2023Q4

REPORT INFORMATION
  Report Type: Spontaneous
  Country: US (occurrence: US)
  Receive Date: 20200930
  Receipt Date: 20231006
  Transmission Date: 20240109
  Serious: No
  Sender: FDA-Public Use
  Company Number: US-GSKCCFUS-CASE-00834334_AE-48514

PATIENT
  Age: 31 Year
  Sex: Female

DRUGS (1)
  1. BENLYSTA [Suspect]
     Active Substance: BELIMUMAB
     Indication: Systemic lupus erythematosus
     Dosage: 200 MG/ML, WE
     Route: 058
     Dates: start: 20200907

REACTIONS (7)
  - Injection site haemorrhage [Recovered/Resolved]
  - Night sweats [Not Recovered/Not Resolved]
  - Gastrointestinal inflammation [Unknown]
  - Underdose [Unknown]
  - Product administered at inappropriate site [Unknown]
  - Product dose omission issue [Unknown]
  - Product complaint [Unknown]

NARRATIVE: CASE EVENT DATE: 20200920
